FAERS Safety Report 7694452-1 (Version None)
Quarter: 2011Q3

REPORT INFORMATION
  Report Type: 
  Country: None (occurrence: None)
  Receive Date: 20110819
  Receipt Date: 20110805
  Transmission Date: 20111222
  Serious: Yes (Other)
  Sender: FDA-Public Use
  Company Number: PHHY2011US60930

PATIENT
  Sex: Female

DRUGS (6)
  1. PAXIL [Suspect]
     Dosage: UNK UKN, UNK
     Dates: start: 20000101
  2. LYRICA [Suspect]
     Dosage: UNK UKN, UNK
  3. LIPITOR [Suspect]
     Dosage: UNK UKN, UNK
  4. UNKNOWN SULFA DRUGS [Suspect]
     Dosage: UNK UKN, UNK
  5. DIOVAN HCT [Suspect]
     Dosage: 1 DF, UNK
  6. LORAZEPAM [Suspect]
     Dosage: UNK UKN, UNK

REACTIONS (7)
  - HERPES ZOSTER [None]
  - MALAISE [None]
  - BLOOD PRESSURE FLUCTUATION [None]
  - DRUG INEFFECTIVE [None]
  - WEIGHT INCREASED [None]
  - CARDIAC DISORDER [None]
  - PAIN IN EXTREMITY [None]
